FAERS Safety Report 19448127 (Version 1)
Quarter: 2021Q2

REPORT INFORMATION
  Report Type: Spontaneous
  Country: US (occurrence: US)
  Receive Date: 20210622
  Receipt Date: 20210622
  Transmission Date: 20210717
  Serious: Yes (Hospitalization)
  Sender: FDA-Public Use
  Company Number: None

PATIENT
  Age: 25 Year
  Sex: Male
  Weight: 79.65 kg

DRUGS (3)
  1. LAMOTRIGINE. [Suspect]
     Active Substance: LAMOTRIGINE
     Indication: EPILEPSY
     Dates: start: 20200614, end: 20200618
  2. CELEXA [Concomitant]
     Active Substance: CITALOPRAM HYDROBROMIDE
  3. DILANTIN [Concomitant]
     Active Substance: PHENYTOIN

REACTIONS (3)
  - Suicidal ideation [None]
  - Mood altered [None]
  - Morbid thoughts [None]

NARRATIVE: CASE EVENT DATE: 20200618
